FAERS Safety Report 24000863 (Version 1)
Quarter: 2024Q2

REPORT INFORMATION
  Report Type: Spontaneous
  Country: CN (occurrence: None)
  Receive Date: 20240621
  Receipt Date: 20240621
  Transmission Date: 20240716
  Serious: Yes (Other)
  Sender: FDA-Public Use
  Company Number: 2024A140076

PATIENT
  Age: 27727 Day
  Sex: Male
  Weight: 69 kg

DRUGS (2)
  1. XIGDUO XR [Suspect]
     Active Substance: DAPAGLIFLOZIN PROPANEDIOL\METFORMIN HYDROCHLORIDE
     Indication: Blood glucose abnormal
     Dosage: DAPAGLIFLOZIN 10 MG AND METFORMIN 1000 MG
     Route: 048
     Dates: start: 20231101, end: 20240604
  2. XIGDUO XR [Suspect]
     Active Substance: DAPAGLIFLOZIN PROPANEDIOL\METFORMIN HYDROCHLORIDE
     Indication: Hypoglycaemia
     Dosage: DAPAGLIFLOZIN 10 MG AND METFORMIN 1000 MG
     Route: 048
     Dates: start: 20231101, end: 20240604

REACTIONS (2)
  - Marasmus [Recovering/Resolving]
  - Blood glucose increased [Unknown]

NARRATIVE: CASE EVENT DATE: 20231208
